FAERS Safety Report 15897812 (Version 2)
Quarter: 2019Q1

REPORT INFORMATION
  Report Type: Report from Study
  Country: None (occurrence: CA)
  Receive Date: 20190201
  Receipt Date: 20190306
  Transmission Date: 20190417
  Serious: Yes (Death)
  Sender: FDA-Public Use
  Company Number: CA-ABBVIE-19K-028-2647662-00

PATIENT
  Sex: Male
  Weight: 89.6 kg

DRUGS (1)
  1. VENCLEXTA [Suspect]
     Active Substance: VENETOCLAX
     Indication: CHRONIC LYMPHOCYTIC LEUKAEMIA
     Route: 048
     Dates: start: 20181217

REACTIONS (2)
  - Chronic lymphocytic leukaemia [Fatal]
  - Splenomegaly [Unknown]
